FAERS Safety Report 10308568 (Version 1)
Quarter: 2014Q3

REPORT INFORMATION
  Report Type: Spontaneous
  Country: US (occurrence: None)
  Receive Date: 20140715
  Receipt Date: 20140715
  Transmission Date: 20150326
  Serious: Yes (Life-Threatening, Hospitalization)
  Sender: FDA-Public Use
  Company Number: None

PATIENT
  Age: 42 Year
  Sex: Male
  Weight: 76 kg

DRUGS (2)
  1. MULTIVITAMIN [Concomitant]
     Active Substance: VITAMINS
  2. EMTRICITABINE/TENOFOVIR DISOPROXIL FUMARATE 200/300 MG TABLET GILEAD SCIENCES, INC [Suspect]
     Active Substance: EMTRICITABINE\TENOFOVIR DISOPROXIL FUMARATE
     Indication: PROPHYLAXIS AGAINST HIV INFECTION
     Route: 048
     Dates: start: 20140227, end: 20140514

REACTIONS (4)
  - Respiratory tract congestion [None]
  - Suicidal ideation [None]
  - Death of companion [None]
  - Depression [None]

NARRATIVE: CASE EVENT DATE: 20140515
